FAERS Safety Report 24789081 (Version 1)
Quarter: 2024Q4

REPORT INFORMATION
  Report Type: Spontaneous
  Country: CA (occurrence: None)
  Receive Date: 20241228
  Receipt Date: 20241228
  Transmission Date: 20250115
  Serious: Yes (Disabling)
  Sender: Public
  Company Number: None

PATIENT
  Sex: Male

DRUGS (4)
  1. LEXAPRO [Suspect]
     Active Substance: ESCITALOPRAM OXALATE
     Indication: Anxiety
     Dosage: ORAL
     Route: 048
     Dates: start: 20081220, end: 20090201
  2. LEXAPRO [Suspect]
     Active Substance: ESCITALOPRAM OXALATE
     Indication: Obsessive-compulsive disorder
  3. LEXAPRO [Suspect]
     Active Substance: ESCITALOPRAM OXALATE
     Indication: Depression
  4. SYNTHROID [Concomitant]
     Active Substance: LEVOTHYROXINE SODIUM

REACTIONS (9)
  - Sexual dysfunction [None]
  - Genital paraesthesia [None]
  - Anorgasmia [None]
  - Erectile dysfunction [None]
  - Libido decreased [None]
  - Emotional disorder [None]
  - Sensory loss [None]
  - Therapy cessation [None]
  - Sexual dysfunction [None]
